FAERS Safety Report 24539938 (Version 2)
Quarter: 2025Q3

REPORT INFORMATION
  Report Type: Spontaneous
  Country: EU (occurrence: EU)
  Receive Date: 20241023
  Receipt Date: 20250810
  Transmission Date: 20251021
  Serious: Yes (Other)
  Sender: ALEXION PHARMACEUTICALS
  Company Number: EU-ASTRAZENECA-202409EEA008332ES

PATIENT
  Age: 86 Year
  Sex: Female

DRUGS (1)
  1. DAPAGLIFLOZIN [Suspect]
     Active Substance: DAPAGLIFLOZIN
     Indication: Fatigue

REACTIONS (8)
  - Glaucoma [Unknown]
  - Blood pressure ambulatory decreased [Unknown]
  - Heart rate increased [Unknown]
  - Dizziness [Unknown]
  - Feeling cold [Unknown]
  - Body temperature decreased [Unknown]
  - Urinary retention [Unknown]
  - Tremor [Unknown]
